FAERS Safety Report 8797351 (Version 2)
Quarter: 2015Q1

REPORT INFORMATION
  Report Type: Report from Study
  Country: US (occurrence: US)
  Receive Date: 20120919
  Receipt Date: 20150326
  Transmission Date: 20150721
  Serious: Yes (Death, Hospitalization)
  Sender: FDA-Public Use
  Company Number: US-ROCHE-1124979

PATIENT
  Age: 57 Year
  Sex: Male

DRUGS (22)
  1. AVASTIN [Suspect]
     Active Substance: BEVACIZUMAB
     Indication: BRAIN NEOPLASM MALIGNANT
     Route: 042
     Dates: start: 20080529
  2. IRINOTECAN HYDROCHLORIDE. [Concomitant]
     Active Substance: IRINOTECAN HYDROCHLORIDE
     Route: 065
  3. IRINOTECAN HYDROCHLORIDE. [Concomitant]
     Active Substance: IRINOTECAN HYDROCHLORIDE
     Route: 065
  4. ONDANSETRON HYDROCHLORIDE. [Concomitant]
     Active Substance: ONDANSETRON HYDROCHLORIDE
     Route: 065
  5. ZOFRAN [Concomitant]
     Active Substance: ONDANSETRON HYDROCHLORIDE
     Route: 042
  6. ATROPINE SULFATE. [Concomitant]
     Active Substance: ATROPINE SULFATE
     Route: 042
  7. DECADRON [Concomitant]
     Active Substance: DEXAMETHASONE
     Route: 065
  8. KEPPRA [Concomitant]
     Active Substance: LEVETIRACETAM
     Route: 065
  9. PREDNISONE. [Concomitant]
     Active Substance: PREDNISONE
     Route: 065
  10. TEMODAR [Concomitant]
     Active Substance: TEMOZOLOMIDE
     Route: 065
  11. CAMPTOSAR [Concomitant]
     Active Substance: IRINOTECAN HYDROCHLORIDE
  12. CISPLATIN. [Concomitant]
     Active Substance: CISPLATIN
     Route: 042
  13. AVASTIN [Suspect]
     Active Substance: BEVACIZUMAB
     Route: 042
  14. DEXAMETHASONE SODIUM PHOSPHATE. [Concomitant]
     Active Substance: DEXAMETHASONE SODIUM PHOSPHATE
     Route: 065
  15. AVASTIN [Suspect]
     Active Substance: BEVACIZUMAB
     Route: 042
  16. NEXIUM [Concomitant]
     Active Substance: ESOMEPRAZOLE MAGNESIUM
     Route: 065
  17. GLUCOPHAGE [Concomitant]
     Active Substance: METFORMIN HYDROCHLORIDE
     Route: 065
  18. MARINOL (UNITED STATES) [Concomitant]
     Route: 065
  19. IRINOTECAN HYDROCHLORIDE. [Concomitant]
     Active Substance: IRINOTECAN HYDROCHLORIDE
     Route: 065
  20. PRINIVIL [Concomitant]
     Active Substance: LISINOPRIL
     Route: 065
  21. TOPROL XL [Concomitant]
     Active Substance: METOPROLOL SUCCINATE
     Route: 065
  22. DIABETA [Concomitant]
     Active Substance: GLYBURIDE
     Route: 065

REACTIONS (22)
  - Movement disorder [Unknown]
  - Neuropathy peripheral [Unknown]
  - Anaemia [Unknown]
  - Weight decreased [Unknown]
  - Hypotension [Unknown]
  - Device related infection [Unknown]
  - Blood pressure abnormal [Unknown]
  - Depression [Unknown]
  - Diabetes mellitus inadequate control [Unknown]
  - Fatigue [Unknown]
  - Impaired healing [Unknown]
  - Death [Fatal]
  - Alopecia [Unknown]
  - Malnutrition [Unknown]
  - Off label use [Unknown]
  - Haematoma [Recovering/Resolving]
  - Neutropenia [Unknown]
  - Renal failure [Unknown]
  - Pulmonary embolism [Unknown]
  - Deep vein thrombosis [Unknown]
  - Peritumoural oedema [Unknown]
  - Decreased appetite [Unknown]

NARRATIVE: CASE EVENT DATE: 20080728
